FAERS Safety Report 4421275-9 (Version None)
Quarter: 2004Q3

REPORT INFORMATION
  Report Type: 
  Country: None (occurrence: None)
  Receive Date: 20040707
  Receipt Date: 20040527
  Transmission Date: 20050211
  Serious: No
  Sender: FDA-Public Use
  Company Number: SU-2004-002417

PATIENT
  Age: 83 Year
  Sex: Male
  Weight: 67.586 kg

DRUGS (6)
  1. BENICAR HCT [Suspect]
     Indication: HYPERTENSION
     Dosage: 20.125 MG QD PO
     Route: 048
     Dates: start: 20030926, end: 20040526
  2. ADVAIR [Concomitant]
  3. ASPIRIN [Concomitant]
  4. MAXZIDE [Concomitant]
  5. TOPROL-XL [Concomitant]
  6. ZOCOR [Concomitant]

REACTIONS (2)
  - BLOOD CREATININE INCREASED [None]
  - HYPERKALAEMIA [None]
